FAERS Safety Report 21237589 (Version 1)
Quarter: 2022Q3

REPORT INFORMATION
  Report Type: Spontaneous
  Country: GB (occurrence: GB)
  Receive Date: 20220822
  Receipt Date: 20220822
  Transmission Date: 20221027
  Serious: Yes (Hospitalization)
  Sender: FDA-Public Use
  Company Number: GB-MYLANLABS-2022M1087454

PATIENT
  Sex: Female

DRUGS (9)
  1. ATORVASTATIN [Suspect]
     Active Substance: ATORVASTATIN
     Indication: Product used for unknown indication
     Dosage: 10 MILLIGRAM, QD (10MG, ONE AT NIGHT)
     Route: 065
     Dates: start: 20220726
  2. METFORMIN [Suspect]
     Active Substance: METFORMIN HYDROCHLORIDE
     Dosage: 500 MILLIGRAM, QD (500MG, MR ONE DAILY;)
     Route: 065
     Dates: start: 20220726
  3. GLICLAZIDE [Suspect]
     Active Substance: GLICLAZIDE
     Dosage: 60 MILLIGRAM, BID(60 MR, ONE MORNING AND NIGHT)
     Route: 065
     Dates: start: 20220726
  4. CARBIDOPA\LEVODOPA [Suspect]
     Active Substance: CARBIDOPA\LEVODOPA
     Indication: Product used for unknown indication
     Dosage: HS(12.5/50MG- 2 IN MORNING,25/100MG- ONE AT NIGHT;
     Route: 065
     Dates: start: 20220726
  5. CHOLECALCIFEROL [Suspect]
     Active Substance: CHOLECALCIFEROL
     Indication: Product used for unknown indication
     Dosage: UNK, AM (800- 1 ONE IN MORNING)
     Route: 065
     Dates: start: 20220726
  6. LEVOTHYROXINE [Suspect]
     Active Substance: LEVOTHYROXINE
     Indication: Product used for unknown indication
     Dosage: 100MCG, ONE DAILY
     Route: 048
     Dates: start: 20220726
  7. LEVOTHYROXINE [Suspect]
     Active Substance: LEVOTHYROXINE
     Dosage: 25 MICROGRAM, QD
     Route: 065
     Dates: start: 20220726
  8. SENNA [Suspect]
     Active Substance: SENNA LEAF\SENNOSIDES\SENNOSIDES A AND B
     Indication: Product used for unknown indication
     Dosage: 7.5 MILLIGRAM, (7.5MG- 2 AT NIGHT)
     Route: 065
     Dates: start: 20220726
  9. SITAGLIPTIN [Suspect]
     Active Substance: SITAGLIPTIN
     Indication: Product used for unknown indication
     Dosage: 25 MILLIGRAM, TID25MG, 2 MORNING AND 1 AT NIGHT; ;
     Route: 065
     Dates: start: 20220726

REACTIONS (3)
  - Wrong patient received product [Unknown]
  - Loss of consciousness [Unknown]
  - Wrong product administered [Unknown]

NARRATIVE: CASE EVENT DATE: 20220726
